FAERS Safety Report 7773595-8 (Version None)
Quarter: 2011Q3

REPORT INFORMATION
  Report Type: 
  Country: None (occurrence: None)
  Receive Date: 20110923
  Receipt Date: 20110915
  Transmission Date: 20111222
  Serious: Yes (Hospitalization)
  Sender: FDA-Public Use
  Company Number: US-BIOGENIDEC-2011BI034467

PATIENT
  Age: 46 Year
  Sex: Female

DRUGS (8)
  1. TYSABRI [Suspect]
     Indication: MULTIPLE SCLEROSIS
     Route: 042
     Dates: start: 20110606, end: 20110705
  2. PRILOSEC [Concomitant]
  3. LYRICA [Concomitant]
  4. LORTAB [Concomitant]
     Indication: PAIN
  5. NORVASC [Concomitant]
  6. AMBIEN [Concomitant]
  7. SOMA [Concomitant]
  8. LOPRESSOR [Concomitant]

REACTIONS (4)
  - SINUS TACHYCARDIA [None]
  - LIVER FUNCTION TEST ABNORMAL [None]
  - MULTIPLE SCLEROSIS RELAPSE [None]
  - HEART RATE DECREASED [None]
